FAERS Safety Report 13631511 (Version 1)
Quarter: 2017Q2

REPORT INFORMATION
  Report Type: Spontaneous
  Country: US (occurrence: US)
  Receive Date: 20170531
  Receipt Date: 20170531
  Transmission Date: 20170830
  Serious: No
  Sender: FDA-Public Use
  Company Number: US-ASTELLAS-1388462

PATIENT
  Sex: Male
  Weight: 104.42 kg

DRUGS (10)
  1. TARCEVA [Suspect]
     Active Substance: ERLOTINIB HYDROCHLORIDE
     Indication: LUNG NEOPLASM MALIGNANT
     Route: 048
     Dates: start: 20131009
  2. FLUCONAZOLE. [Concomitant]
     Active Substance: FLUCONAZOLE
  3. DOXYCYCLINE. [Concomitant]
     Active Substance: DOXYCYCLINE
  4. METOPROLOL TARTRATE. [Concomitant]
     Active Substance: METOPROLOL TARTRATE
  5. CEPHALEXIN. [Concomitant]
     Active Substance: CEPHALEXIN
  6. PRAVASTATIN. [Concomitant]
     Active Substance: PRAVASTATIN
  7. TEMAZEPAM. [Concomitant]
     Active Substance: TEMAZEPAM
  8. DEXAMETHASONE. [Concomitant]
     Active Substance: DEXAMETHASONE
  9. FAMCICLOVIR. [Concomitant]
     Active Substance: FAMCICLOVIR
  10. FAMOTIDINE. [Concomitant]
     Active Substance: FAMOTIDINE

REACTIONS (3)
  - Diarrhoea [Unknown]
  - Disease progression [Unknown]
  - Rash [Unknown]
